FAERS Safety Report 6043015-2 (Version None)
Quarter: 2009Q1

REPORT INFORMATION
  Report Type: 
  Country: None (occurrence: None)
  Receive Date: 20090119
  Receipt Date: 20090115
  Transmission Date: 20090719
  Serious: Yes (Hospitalization, Other)
  Sender: FDA-Public Use
  Company Number: US-PURDUE-USA_2009_0036529

PATIENT
  Age: 14 Month
  Sex: Male

DRUGS (1)
  1. OXYCONTIN [Suspect]
     Indication: ACCIDENTAL EXPOSURE
     Dosage: 40 MG, SINGLE
     Route: 048

REACTIONS (5)
  - ACCIDENTAL DRUG INTAKE BY CHILD [None]
  - COMA [None]
  - MIOSIS [None]
  - PULMONARY OEDEMA [None]
  - RESPIRATORY DEPRESSION [None]
